FAERS Safety Report 12981942 (Version 3)
Quarter: 2017Q1

REPORT INFORMATION
  Report Type: Spontaneous
  Country: US (occurrence: US)
  Receive Date: 20161129
  Receipt Date: 20170130
  Transmission Date: 20170428
  Serious: Yes (Other)
  Sender: FDA-Public Use
  Company Number: US-JNJFOC-20161120670

PATIENT
  Age: 57 Year
  Sex: Female
  Weight: 50.8 kg

DRUGS (1)
  1. NEOSPORIN PLUS PAIN RELIEF CREAM [Suspect]
     Active Substance: BACITRACIN ZINC\LIDOCAINE\NEOMYCIN\POLYMYXIN B SULFATE
     Indication: SKIN ABRASION
     Dosage: PEA SIZE OR LESS
     Route: 061
     Dates: start: 20160826, end: 20160826

REACTIONS (6)
  - Drug ineffective [Unknown]
  - Chemical injury [Not Recovered/Not Resolved]
  - Application site pain [Not Recovered/Not Resolved]
  - Cellulitis [Recovering/Resolving]
  - Application site pruritus [Not Recovered/Not Resolved]
  - Application site scar [Not Recovered/Not Resolved]

NARRATIVE: CASE EVENT DATE: 2016
